FAERS Safety Report 5737013-3 (Version None)
Quarter: 2008Q2

REPORT INFORMATION
  Report Type: 
  Country: None (occurrence: None)
  Receive Date: 20080512
  Receipt Date: 20080512
  Transmission Date: 20081010
  Serious: Yes (Hospitalization)
  Sender: FDA-Public Use
  Company Number: None

PATIENT
  Sex: Female
  Weight: 53.0709 kg

DRUGS (1)
  1. PULMICORT RESPULES [Suspect]
     Indication: DRUG THERAPY
     Dosage: 30 SINGLE AMP PER CART TWICE DAILY ONE PUFF TWICE DAILY USED 5 DAYS
     Dates: start: 20080314

REACTIONS (2)
  - RASH PRURITIC [None]
  - SWELLING [None]
